FAERS Safety Report 15767442 (Version 1)
Quarter: 2018Q4

REPORT INFORMATION
  Report Type: Spontaneous
  Country: US (occurrence: US)
  Receive Date: 20181227
  Receipt Date: 20181227
  Transmission Date: 20190205
  Serious: Yes (Life-Threatening, Hospitalization, Other)
  Sender: FDA-Public Use
  Company Number: US-TEVA-2018-US-992722

PATIENT
  Age: 12 Year
  Sex: Female

DRUGS (15)
  1. ACETAZOLAMIDE. [Suspect]
     Active Substance: ACETAZOLAMIDE
     Indication: STATUS EPILEPTICUS
     Route: 065
  2. PREDNISONE. [Suspect]
     Active Substance: PREDNISONE
     Indication: STATUS EPILEPTICUS
     Route: 065
  3. LACOSAMIDE. [Suspect]
     Active Substance: LACOSAMIDE
     Indication: STATUS EPILEPTICUS
     Route: 065
  4. PERAMPANEL [Suspect]
     Active Substance: PERAMPANEL
     Indication: STATUS EPILEPTICUS
     Route: 065
  5. EPIDIOLEX [Interacting]
     Active Substance: CANNABIDIOL
     Indication: STATUS EPILEPTICUS
     Dosage: UP TITRATED BY 5 MG/KG/DAY EVERY 3 DAYS TO A PEAK DOSE OF 20 MG/KG/DAY.
     Route: 048
  6. ALLOPREGNANOLONE [Suspect]
     Active Substance: BREXANOLONE
     Indication: STATUS EPILEPTICUS
     Route: 065
  7. PENTOBARBITAL. [Concomitant]
     Active Substance: PENTOBARBITAL
     Indication: STATUS EPILEPTICUS
     Route: 041
  8. CLOBAZAM. [Interacting]
     Active Substance: CLOBAZAM
     Indication: STATUS EPILEPTICUS
     Route: 065
  9. VIGABATRIN. [Suspect]
     Active Substance: VIGABATRIN
     Indication: STATUS EPILEPTICUS
     Route: 065
  10. MIDAZOLAM [Concomitant]
     Active Substance: MIDAZOLAM HYDROCHLORIDE
     Indication: STATUS EPILEPTICUS
     Route: 041
  11. EPIDIOLEX [Interacting]
     Active Substance: CANNABIDIOL
     Indication: STATUS EPILEPTICUS
     Dosage: INITIAL DOSE.
     Route: 048
  12. IMMUNE-GLOBULIN [Suspect]
     Active Substance: IMMUNE GLOBULIN NOS
     Indication: STATUS EPILEPTICUS
     Route: 042
  13. LEVETIRACETAM. [Suspect]
     Active Substance: LEVETIRACETAM
     Indication: STATUS EPILEPTICUS
     Route: 065
  14. CLOBAZAM. [Interacting]
     Active Substance: CLOBAZAM
     Indication: STATUS EPILEPTICUS
     Route: 065
  15. PHENOBARBITAL. [Interacting]
     Active Substance: PHENOBARBITAL
     Indication: STATUS EPILEPTICUS
     Route: 065

REACTIONS (4)
  - Drug interaction [Unknown]
  - Treatment failure [Unknown]
  - Fatigue [Unknown]
  - Weight increased [Unknown]
